FAERS Safety Report 9668046 (Version 1)
Quarter: 2013Q4

REPORT INFORMATION
  Report Type: Spontaneous
  Country: US (occurrence: US)
  Receive Date: 20131104
  Receipt Date: 20131104
  Transmission Date: 20140711
  Serious: No
  Sender: FDA-Public Use
  Company Number: US-PFIZER INC-2013310468

PATIENT
  Age: 42 Year
  Sex: Female
  Weight: 77.1 kg

DRUGS (6)
  1. XANAX [Suspect]
     Indication: ANXIETY
     Dosage: 1 MG, 4X/DAY
  2. XANAX [Suspect]
     Dosage: UNK
  3. LYRICA [Suspect]
     Indication: FIBROMYALGIA
     Dosage: 75 MG, 2X/DAY
     Dates: start: 2009, end: 201310
  4. CYMBALTA [Suspect]
     Indication: DEPRESSION
     Dosage: 60 MG, DAILY
  5. CYMBALTA [Suspect]
     Indication: POST-TRAUMATIC STRESS DISORDER
     Dosage: UNK
  6. CYMBALTA [Suspect]
     Indication: FIBROMYALGIA

REACTIONS (6)
  - Drug intolerance [Unknown]
  - Anxiety [Unknown]
  - Confusional state [Unknown]
  - Drug hypersensitivity [Unknown]
  - Abdominal pain upper [Unknown]
  - Drug ineffective [Unknown]
